FAERS Safety Report 11996651 (Version 3)
Quarter: 2016Q1

REPORT INFORMATION
  Report Type: Spontaneous
  Country: LV (occurrence: LV)
  Receive Date: 20160203
  Receipt Date: 20160321
  Transmission Date: 20160526
  Serious: Yes (Other)
  Sender: FDA-Public Use
  Company Number: PHHY2016LV005267

PATIENT
  Age: 65 Year
  Sex: Male

DRUGS (3)
  1. ULTIBRO BREEZHALER [Suspect]
     Active Substance: GLYCOPYRRONIUM\INDACATEROL
     Indication: CHRONIC OBSTRUCTIVE PULMONARY DISEASE
     Dosage: UKN, QD
     Route: 055
     Dates: start: 201408
  2. TRIPLIXAM [Concomitant]
     Active Substance: AMLODIPINE BESYLATE\INDAPAMIDE\PERINDOPRIL ARGININE
     Indication: HYPERTENSION
     Dosage: UNK
     Route: 065
  3. NEBIVOLOL. [Concomitant]
     Active Substance: NEBIVOLOL
     Indication: HYPERTENSION
     Dosage: UNK
     Route: 065

REACTIONS (6)
  - Cardiac discomfort [Unknown]
  - Chills [Unknown]
  - Emotional disorder [Unknown]
  - Agitation [Unknown]
  - Cold sweat [Unknown]
  - Anxiety [Unknown]

NARRATIVE: CASE EVENT DATE: 201510
